FAERS Safety Report 6280245-9 (Version None)
Quarter: 2009Q3

REPORT INFORMATION
  Report Type: 
  Country: None (occurrence: None)
  Receive Date: 20090723
  Receipt Date: 20090723
  Transmission Date: 20100115
  Serious: Yes (Disabling)
  Sender: FDA-Public Use
  Company Number: GB-PFIZER INC-2009236758

PATIENT
  Age: 29 Year

DRUGS (1)
  1. CHAMPIX [Suspect]
     Dosage: UNKNOWN
     Route: 048
     Dates: start: 20090520, end: 20090613

REACTIONS (3)
  - ARTHRALGIA [None]
  - ARTHRITIS [None]
  - GAIT DISTURBANCE [None]
